FAERS Safety Report 26087363 (Version 1)
Quarter: 2025Q4

REPORT INFORMATION
  Report Type: Spontaneous
  Country: US (occurrence: US)
  Receive Date: 20251125
  Receipt Date: 20251125
  Transmission Date: 20260118
  Serious: Yes (Other)
  Sender: COOPERSURGICAL
  Company Number: US-COOPERSURGICAL, INC.-2025CPS008022

PATIENT
  Age: 31 Year
  Sex: Female
  Weight: 64.853 kg

DRUGS (2)
  1. PARAGARD T 380A [Suspect]
     Active Substance: COPPER
     Indication: Contraception
     Dosage: UNK
     Route: 015
     Dates: start: 20150427
  2. VALACYCLOVIR [Concomitant]
     Active Substance: VALACYCLOVIR HYDROCHLORIDE
     Dosage: UNK
     Dates: start: 2009

REACTIONS (19)
  - Reproductive complication associated with device [Not Recovered/Not Resolved]
  - Surgery [Recovered/Resolved]
  - Device breakage [Not Recovered/Not Resolved]
  - Foreign body in reproductive tract [Not Recovered/Not Resolved]
  - Complication of device removal [Not Recovered/Not Resolved]
  - Embedded device [Not Recovered/Not Resolved]
  - Cervix injury [Not Recovered/Not Resolved]
  - Emotional distress [Unknown]
  - Sexual dysfunction [Unknown]
  - Procedural pain [Recovered/Resolved]
  - Pain [Not Recovered/Not Resolved]
  - Device dislocation [Not Recovered/Not Resolved]
  - Device expulsion [Not Recovered/Not Resolved]
  - Abnormal uterine bleeding [Not Recovered/Not Resolved]
  - Discomfort [Not Recovered/Not Resolved]
  - Menstrual disorder [Unknown]
  - Menstruation irregular [Unknown]
  - Dysmenorrhoea [Unknown]
  - Intermenstrual bleeding [Unknown]

NARRATIVE: CASE EVENT DATE: 20150710
